FAERS Safety Report 24087745 (Version 1)
Quarter: 2024Q3

REPORT INFORMATION
  Report Type: Spontaneous
  Country: US (occurrence: US)
  Receive Date: 20240715
  Receipt Date: 20240715
  Transmission Date: 20241017
  Serious: Yes (Hospitalization, Other)
  Sender: DR REDDYS
  Company Number: None

PATIENT
  Age: 85 Year
  Sex: Female

DRUGS (18)
  1. DOXORUBICIN [Suspect]
     Active Substance: DOXORUBICIN
     Indication: Diffuse large B-cell lymphoma
  2. DOXORUBICIN [Suspect]
     Active Substance: DOXORUBICIN
     Indication: Metastases to central nervous system
  3. DOXORUBICIN [Suspect]
     Active Substance: DOXORUBICIN
     Indication: Metastases to pelvis
  4. CYCLOPHOSPHAMIDE [Suspect]
     Active Substance: CYCLOPHOSPHAMIDE
     Indication: Diffuse large B-cell lymphoma
  5. CYCLOPHOSPHAMIDE [Suspect]
     Active Substance: CYCLOPHOSPHAMIDE
     Indication: Metastases to central nervous system
  6. CYCLOPHOSPHAMIDE [Suspect]
     Active Substance: CYCLOPHOSPHAMIDE
     Indication: Metastases to pelvis
  7. RITUXIMAB [Suspect]
     Active Substance: RITUXIMAB
     Indication: Diffuse large B-cell lymphoma
  8. RITUXIMAB [Suspect]
     Active Substance: RITUXIMAB
     Indication: Metastases to central nervous system
  9. RITUXIMAB [Suspect]
     Active Substance: RITUXIMAB
     Indication: Metastases to pelvis
  10. VINCRISTINE [Suspect]
     Active Substance: VINCRISTINE
     Indication: Diffuse large B-cell lymphoma
  11. VINCRISTINE [Suspect]
     Active Substance: VINCRISTINE
     Indication: Metastases to central nervous system
  12. VINCRISTINE [Suspect]
     Active Substance: VINCRISTINE
     Indication: Metastases to pelvis
  13. PREDNISONE [Suspect]
     Active Substance: PREDNISONE
     Indication: Metastases to pelvis
  14. PREDNISONE [Suspect]
     Active Substance: PREDNISONE
     Indication: Metastases to central nervous system
  15. PREDNISONE [Suspect]
     Active Substance: PREDNISONE
     Indication: Diffuse large B-cell lymphoma
  16. LONCASTUXIMAB TESIRINE-LPYL [Suspect]
     Active Substance: LONCASTUXIMAB TESIRINE-LPYL
     Indication: Metastases to central nervous system
     Dosage: FOUR CYCLES OF LONCASTUXIMAB TESIRINE-LPYL
  17. LONCASTUXIMAB TESIRINE-LPYL [Suspect]
     Active Substance: LONCASTUXIMAB TESIRINE-LPYL
     Indication: Diffuse large B-cell lymphoma
  18. LONCASTUXIMAB TESIRINE-LPYL [Suspect]
     Active Substance: LONCASTUXIMAB TESIRINE-LPYL
     Indication: Metastases to pelvis

REACTIONS (3)
  - CNS ventriculitis [Recovering/Resolving]
  - Hydrocephalus [Recovering/Resolving]
  - Meningitis pneumococcal [Recovering/Resolving]
